FAERS Safety Report 16562124 (Version 5)
Quarter: 2019Q4

REPORT INFORMATION
  Report Type: Spontaneous
  Country: US (occurrence: US)
  Receive Date: 20190711
  Receipt Date: 20191120
  Transmission Date: 20200122
  Serious: No
  Sender: FDA-Public Use
  Company Number: US-ACTELION-A-NJ2019-192851

PATIENT
  Age: 71 Year
  Sex: Male
  Weight: 95.24 kg

DRUGS (7)
  1. UPTRAVI [Suspect]
     Active Substance: SELEXIPAG
     Dosage: 200 MCG AM AND 300 MCG PM
     Route: 048
  2. SILDENAFIL CITRATE. [Concomitant]
     Active Substance: SILDENAFIL CITRATE
  3. UPTRAVI [Suspect]
     Active Substance: SELEXIPAG
     Dosage: 400 MCG, BID
     Route: 048
     Dates: start: 20190627
  4. OPSUMIT [Suspect]
     Active Substance: MACITENTAN
     Indication: PULMONARY ARTERIAL HYPERTENSION
     Dosage: 10 MG, QD
     Route: 048
     Dates: start: 20190416
  5. ELIQUIS [Concomitant]
     Active Substance: APIXABAN
  6. UPTRAVI [Suspect]
     Active Substance: SELEXIPAG
     Indication: PULMONARY ARTERIAL HYPERTENSION
     Dosage: 200 MCG AM AND 400 MCG PM
     Route: 048
  7. UPTRAVI [Suspect]
     Active Substance: SELEXIPAG
     Dosage: 200 MCG, BID
     Route: 048
     Dates: start: 201906

REACTIONS (11)
  - Pain [Unknown]
  - Product administration error [Unknown]
  - Myalgia [Unknown]
  - Flushing [Unknown]
  - Headache [Unknown]
  - Adverse event [Unknown]
  - Nausea [Unknown]
  - Drug intolerance [Unknown]
  - Diarrhoea [Unknown]
  - Night sweats [Unknown]
  - Pain in jaw [Unknown]

NARRATIVE: CASE EVENT DATE: 20190626
